FAERS Safety Report 12471809 (Version 1)
Quarter: 2016Q2

REPORT INFORMATION
  Report Type: Spontaneous
  Country: US (occurrence: None)
  Receive Date: 20160615
  Receipt Date: 20160615
  Transmission Date: 20160815
  Serious: Yes (Life-Threatening, Hospitalization)
  Sender: FDA-Public Use
  Company Number: None

PATIENT
  Age: 64 Year
  Sex: Male
  Weight: 112.5 kg

DRUGS (1)
  1. RIVAROXABAN [Suspect]
     Active Substance: RIVAROXABAN
     Indication: ATRIAL FIBRILLATION
     Route: 048
     Dates: start: 20160419, end: 20160606

REACTIONS (5)
  - Haemoglobin decreased [None]
  - Fatigue [None]
  - Melaena [None]
  - Gastric haemorrhage [None]
  - Haematochezia [None]

NARRATIVE: CASE EVENT DATE: 20160607
